FAERS Safety Report 8154894-7 (Version None)
Quarter: 2012Q1

REPORT INFORMATION
  Report Type: 
  Country: None (occurrence: None)
  Receive Date: 20120221
  Receipt Date: 20120214
  Transmission Date: 20120608
  Serious: Yes (Other)
  Sender: FDA-Public Use
  Company Number: PHHY2011CA72286

PATIENT
  Sex: Female

DRUGS (4)
  1. GILENYA [Suspect]
     Indication: RELAPSING-REMITTING MULTIPLE SCLEROSIS
     Dosage: 0.5 MG, DAILY
     Route: 048
     Dates: start: 20110809
  2. LIPITOR [Concomitant]
     Dosage: UNK UKN, UNK
  3. ACE INHIBITORS [Concomitant]
     Dosage: UNK UKN, UNK
  4. MULTI-VITAMINS [Concomitant]
     Dosage: UNK UKN, UNK

REACTIONS (6)
  - PALPITATIONS [None]
  - HEART RATE DECREASED [None]
  - HYPERHIDROSIS [None]
  - BLOOD PRESSURE INCREASED [None]
  - HYPOTENSION [None]
  - ELECTROCARDIOGRAM QT PROLONGED [None]
